FAERS Safety Report 5330679-1 (Version None)
Quarter: 2007Q2

REPORT INFORMATION
  Report Type: 
  Country: None (occurrence: None)
  Receive Date: 20070522
  Receipt Date: 20070508
  Transmission Date: 20071010
  Serious: Yes (Other)
  Sender: FDA-Public Use
  Company Number: PHFR2007GB01430

PATIENT
  Age: 65 Year
  Sex: Female

DRUGS (2)
  1. GLEEVEC [Suspect]
     Indication: CHRONIC MYELOID LEUKAEMIA
     Dosage: 400MG/DAY
     Route: 048
     Dates: start: 20050727
  2. GLEEVEC [Suspect]
     Dosage: 300MG/DAY

REACTIONS (2)
  - FACIAL PALSY [None]
  - PERIORBITAL OEDEMA [None]
